FAERS Safety Report 5273638-X (Version None)
Quarter: 2007Q1

REPORT INFORMATION
  Report Type: 
  Country: None (occurrence: None)
  Receive Date: 20070323
  Receipt Date: 20060811
  Transmission Date: 20070707
  Serious: No
  Sender: FDA-Public Use
  Company Number: US-GLAXOSMITHKLINE-A0612043A

PATIENT
  Age: 54 Year
  Sex: Male

DRUGS (5)
  1. LEUKERAN [Suspect]
     Dosage: 2MG THREE TIMES PER DAY
     Route: 048
     Dates: start: 20051201
  2. EFFEXOR [Concomitant]
  3. PREDNISONE [Concomitant]
  4. PROVIGIL [Concomitant]
  5. NEURONTIN [Concomitant]

REACTIONS (1)
  - RASH [None]
